FAERS Safety Report 20020019 (Version 1)
Quarter: 2021Q4

REPORT INFORMATION
  Report Type: Spontaneous
  Country: JP (occurrence: JP)
  Receive Date: 20211101
  Receipt Date: 20211101
  Transmission Date: 20220303
  Serious: Yes (Hospitalization)
  Sender: FDA-Public Use
  Company Number: JP-PFIZER INC-202101431179

PATIENT
  Age: 37 Year
  Sex: Male

DRUGS (1)
  1. EFFEXOR [Suspect]
     Active Substance: VENLAFAXINE HYDROCHLORIDE
     Dosage: 75 MG
     Route: 048

REACTIONS (3)
  - Irritability [Recovering/Resolving]
  - Mood altered [Recovering/Resolving]
  - Activation syndrome [Recovering/Resolving]
